FAERS Safety Report 12771788 (Version 1)
Quarter: 2016Q3

REPORT INFORMATION
  Report Type: Other
  Country: US (occurrence: US)
  Receive Date: 20160922
  Receipt Date: 20160922
  Transmission Date: 20161109
  Serious: Yes (Other)
  Sender: FDA-Public Use
  Company Number: US-COL_24477_2016

PATIENT
  Sex: Male

DRUGS (1)
  1. COLGATE TOTAL WHITENING [Suspect]
     Active Substance: SODIUM FLUORIDE\TRICLOSAN
     Indication: DENTAL DISORDER PROPHYLAXIS
     Dosage: 1 INCH LONG BY 0.25 INCH THICK STRIP/TWO TIMES A DAY/
     Route: 048
     Dates: start: 2004

REACTIONS (4)
  - Loss of employment [Not Recovered/Not Resolved]
  - Arthralgia [Not Recovered/Not Resolved]
  - Loose tooth [Recovered/Resolved]
  - Arthropathy [Unknown]

NARRATIVE: CASE EVENT DATE: 2006
